FAERS Safety Report 8679163 (Version 5)
Quarter: 2012Q4

REPORT INFORMATION
  Report Type: 
  Country: US (occurrence: US)
  Receive Date: 20120724
  Receipt Date: 20121126
  Transmission Date: 20130627
  Serious: No
  Sender: FDA-Public Use
  Company Number: US-PFIZER INC-2012174935

PATIENT
  Age: 68 Year
  Sex: Male

DRUGS (1)
  1. INLYTA [Suspect]
     Indication: RENAL CANCER
     Dosage: 5 mg, 2x/day
     Route: 048
     Dates: start: 201204

REACTIONS (18)
  - Weight decreased [Unknown]
  - Fatigue [Not Recovered/Not Resolved]
  - Decreased appetite [Recovering/Resolving]
  - Dysgeusia [Recovering/Resolving]
  - Increased tendency to bruise [Not Recovered/Not Resolved]
  - Constipation [Unknown]
  - Skin irritation [Unknown]
  - Dysphonia [Not Recovered/Not Resolved]
  - Headache [Recovering/Resolving]
  - Asthenia [Not Recovered/Not Resolved]
  - Blood glucose fluctuation [Unknown]
  - Hyperaesthesia [Unknown]
  - Oral pain [Not Recovered/Not Resolved]
  - Gingival inflammation [Unknown]
  - Glossodynia [Unknown]
  - Hypertension [Recovering/Resolving]
  - Lethargy [Unknown]
  - Hyperkeratosis [Not Recovered/Not Resolved]
